FAERS Safety Report 14208649 (Version 3)
Quarter: 2018Q2

REPORT INFORMATION
  Report Type: Spontaneous
  Country: US (occurrence: US)
  Receive Date: 20171121
  Receipt Date: 20180422
  Transmission Date: 20180711
  Serious: Yes (Hospitalization, Other)
  Sender: FDA-Public Use
  Company Number: US-APOTEX-2017AP021826

PATIENT
  Age: 28 Year
  Sex: Male

DRUGS (1)
  1. FENTANYL TRANSDERMAL SYSTEM [Suspect]
     Active Substance: FENTANYL
     Indication: PRODUCT USED FOR UNKNOWN INDICATION
     Dosage: UNK
     Route: 065

REACTIONS (9)
  - Acute kidney injury [Recovering/Resolving]
  - Myocardial stunning [Not Recovered/Not Resolved]
  - Drug abuse [Unknown]
  - Toxic leukoencephalopathy [Not Recovered/Not Resolved]
  - Loss of consciousness [Not Recovered/Not Resolved]
  - Rhabdomyolysis [Not Recovered/Not Resolved]
  - Overdose [Unknown]
  - Acute hepatic failure [Recovering/Resolving]
  - Hypoglycaemia [Not Recovered/Not Resolved]
